FAERS Safety Report 8213260-6 (Version None)
Quarter: 2012Q1

REPORT INFORMATION
  Report Type: 
  Country: None (occurrence: None)
  Receive Date: 20120315
  Receipt Date: 20120309
  Transmission Date: 20120608
  Serious: Yes (Other)
  Sender: FDA-Public Use
  Company Number: US-ABBOTT-12P-163-0913377-00

PATIENT
  Sex: Female
  Weight: 97.61 kg

DRUGS (1)
  1. HUMIRA [Suspect]
     Indication: PSORIASIS
     Dates: start: 20080801

REACTIONS (4)
  - VOCAL CORD CYST [None]
  - UPPER RESPIRATORY TRACT INFECTION [None]
  - SNEEZING [None]
  - VOCAL CORD DISORDER [None]
